FAERS Safety Report 6938734-7 (Version None)
Quarter: 2010Q3

REPORT INFORMATION
  Report Type: 
  Country: None (occurrence: None)
  Receive Date: 20100824
  Receipt Date: 20100818
  Transmission Date: 20110219
  Serious: Yes (Death, Hospitalization, Other)
  Sender: FDA-Public Use
  Company Number: PHHY2010NL12794

PATIENT
  Sex: Female
  Weight: 57 kg

DRUGS (4)
  1. GLEEVEC [Suspect]
     Indication: HYPEREOSINOPHILIC SYNDROME
     Dosage: 400 MG, UNK
     Route: 048
     Dates: start: 20100216
  2. ANTICOAGULANTS [Suspect]
  3. PHENPROCOUMON [Concomitant]
  4. PREDNISONE [Concomitant]
     Dosage: 5 MG/DAY

REACTIONS (6)
  - CEREBRAL HAEMORRHAGE [None]
  - COMA [None]
  - HYPERTENSION [None]
  - MALAISE [None]
  - PLATELET COUNT ABNORMAL [None]
  - VOMITING [None]
